FAERS Safety Report 4356683-8 (Version None)
Quarter: 2004Q2

REPORT INFORMATION
  Report Type: 
  Country: None (occurrence: None)
  Receive Date: 20040507
  Receipt Date: 20040415
  Transmission Date: 20050107
  Serious: Yes (Other)
  Sender: FDA-Public Use
  Company Number: USA040465056

PATIENT
  Age: 54 Year
  Sex: Male

DRUGS (3)
  1. HUMALOG [Suspect]
  2. INSULIN [Suspect]
     Dates: start: 19540101
  3. HUMULIN N [Suspect]
     Dosage: 34 U DAY

REACTIONS (5)
  - BLINDNESS [None]
  - DIABETES MELLITUS INSULIN-DEPENDENT [None]
  - LEG AMPUTATION [None]
  - RETINAL SCAR [None]
  - VISUAL ACUITY REDUCED [None]
